FAERS Safety Report 5922930-1 (Version None)
Quarter: 2008Q4

REPORT INFORMATION
  Report Type: 
  Country: None (occurrence: None)
  Receive Date: 20081017
  Receipt Date: 20081008
  Transmission Date: 20090506
  Serious: Yes (Death, Hospitalization)
  Sender: FDA-Public Use
  Company Number: PH-BAXTER-2008BH010752

PATIENT
  Age: 54 Year
  Sex: Female

DRUGS (1)
  1. DIANEAL [Suspect]
     Indication: PERITONEAL DIALYSIS
     Route: 033
     Dates: start: 20070902, end: 20080901

REACTIONS (6)
  - ACIDOSIS [None]
  - ASTHENIA [None]
  - HYPOAESTHESIA [None]
  - RENAL FAILURE CHRONIC [None]
  - TACHYARRHYTHMIA [None]
  - VOMITING [None]
